FAERS Safety Report 7429311-2 (Version None)
Quarter: 2011Q2

REPORT INFORMATION
  Report Type: 
  Country: None (occurrence: None)
  Receive Date: 20110421
  Receipt Date: 20110414
  Transmission Date: 20111010
  Serious: Yes (Other)
  Sender: FDA-Public Use
  Company Number: US-SANOFI-AVENTIS-2011SA018902

PATIENT
  Age: 92 Year
  Sex: Female
  Weight: 49.09 kg

DRUGS (6)
  1. PHENYTOIN [Concomitant]
  2. PROTONIX [Concomitant]
  3. TRIAMTERENE [Concomitant]
     Indication: CARDIAC DISORDER
     Dosage: 37.5/25 DAILY
  4. PLAVIX [Suspect]
     Indication: CEREBROVASCULAR ACCIDENT PROPHYLAXIS
     Route: 048
     Dates: start: 20020101
  5. DIGOXIN [Concomitant]
     Indication: CARDIAC DISORDER
  6. PROCAINAMIDE [Concomitant]

REACTIONS (1)
  - MACULAR DEGENERATION [None]
